FAERS Safety Report 11471657 (Version 1)
Quarter: 2015Q3

REPORT INFORMATION
  Report Type: Spontaneous
  Country: US (occurrence: US)
  Receive Date: 20150908
  Receipt Date: 20150908
  Transmission Date: 20151125
  Serious: Yes (Hospitalization, Other)
  Sender: FDA-Public Use
  Company Number: US-SMITH AND NEPHEW, INC-2015SMT00284

PATIENT
  Age: 62 Year
  Sex: Male
  Weight: 107.94 kg

DRUGS (4)
  1. REGRANEX [Suspect]
     Active Substance: BECAPLERMIN
     Indication: DIABETIC ULCER
     Dosage: UNK UNK, 1X/DAY
     Route: 061
     Dates: start: 201506, end: 201508
  2. COLLAGENASE SANTYL [Suspect]
     Active Substance: COLLAGENASE CLOSTRIDIUM HISTOLYTICUM
     Indication: LACERATION
  3. COLLAGENASE SANTYL [Suspect]
     Active Substance: COLLAGENASE CLOSTRIDIUM HISTOLYTICUM
     Indication: DIABETIC ULCER
     Dosage: UNK
     Route: 061
     Dates: start: 201504, end: 201506
  4. REGRANEX [Suspect]
     Active Substance: BECAPLERMIN
     Indication: LACERATION

REACTIONS (6)
  - Wound complication [Recovering/Resolving]
  - Drug ineffective [Recovering/Resolving]
  - Wound infection staphylococcal [Unknown]
  - Clostridium difficile infection [Unknown]
  - Osteomyelitis [Unknown]
  - Wound infection pseudomonas [Unknown]

NARRATIVE: CASE EVENT DATE: 201506
